FAERS Safety Report 9884331 (Version 2)
Quarter: 2014Q1

REPORT INFORMATION
  Report Type: Spontaneous
  Country: US (occurrence: US)
  Receive Date: 20140210
  Receipt Date: 20140210
  Transmission Date: 20141002
  Serious: No
  Sender: FDA-Public Use
  Company Number: US-ALLERGAN-1315877US

PATIENT
  Age: 53 Year
  Sex: Female

DRUGS (5)
  1. BOTOX COSMETIC [Suspect]
     Indication: SKIN WRINKLING
     Dosage: 10 UNITS, SINGLE
     Route: 030
     Dates: start: 20130404, end: 20130404
  2. BOTOX COSMETIC [Suspect]
     Dosage: 20 UNITS, SINGLE
     Route: 030
     Dates: start: 20130307, end: 20130307
  3. NEXIUM                             /01479302/ [Concomitant]
     Indication: PRODUCT USED FOR UNKNOWN INDICATION
  4. NASACORT [Concomitant]
     Indication: PRODUCT USED FOR UNKNOWN INDICATION
  5. FIORICET [Concomitant]
     Indication: PRODUCT USED FOR UNKNOWN INDICATION

REACTIONS (9)
  - Muscle spasms [Recovered/Resolved]
  - Mass [Recovered/Resolved]
  - Eyelid sensory disorder [Recovered/Resolved]
  - Muscle spasms [Recovered/Resolved]
  - Eyelid oedema [Recovered/Resolved]
  - Facial paresis [Recovered/Resolved]
  - Brow ptosis [Not Recovered/Not Resolved]
  - Facial paresis [Recovered/Resolved]
  - Drug ineffective [Unknown]
